FAERS Safety Report 22143425 (Version 3)
Quarter: 2023Q2

REPORT INFORMATION
  Report Type: Spontaneous
  Country: FR (occurrence: FR)
  Receive Date: 20230327
  Receipt Date: 20230601
  Transmission Date: 20230721
  Serious: Yes (Death, Hospitalization, Other)
  Sender: FDA-Public Use
  Company Number: FR-GLAXOSMITHKLINE-FR2023GSK036394

PATIENT
  Age: 76 Year
  Sex: Female

DRUGS (5)
  1. ACYCLOVIR [Suspect]
     Active Substance: ACYCLOVIR
     Indication: Herpes simplex
     Dosage: 1800 MILLIGRAM, QD(600 MG, TID)
     Route: 042
     Dates: start: 20220301, end: 20220303
  2. ACYCLOVIR [Suspect]
     Active Substance: ACYCLOVIR
     Dosage: 600 MILLIGRAM, QD (200 MG, TID)
     Route: 042
     Dates: start: 20220214, end: 20220221
  3. VALGANCICLOVIR [Suspect]
     Active Substance: VALGANCICLOVIR
     Indication: Antiviral prophylaxis
     Dosage: 450 MILLIGRAM, Q2D, Q48H
     Route: 065
     Dates: start: 20211101
  4. MYCOPHENOLIC ACID [Concomitant]
     Active Substance: MYCOPHENOLIC ACID
     Indication: Immunosuppressant drug therapy
     Dosage: 1000 MILLIGRAM, QD, 500 MG, BID
     Route: 065
     Dates: start: 20211101, end: 20220307
  5. TACROLIMUS [Concomitant]
     Active Substance: TACROLIMUS
     Indication: Immunosuppressant drug therapy
     Dosage: 5 MG (TARGET CONCENTRATION 5 TO 7 NG/ML)
     Route: 065
     Dates: start: 20211101, end: 20220307

REACTIONS (3)
  - Pathogen resistance [Fatal]
  - Herpes simplex [Fatal]
  - Drug resistance [Unknown]
